FAERS Safety Report 4432861-4 (Version None)
Quarter: 2004Q3

REPORT INFORMATION
  Report Type: 
  Country: None (occurrence: None)
  Receive Date: 20040823
  Receipt Date: 20040813
  Transmission Date: 20050211
  Serious: Yes (Life-Threatening, Other)
  Sender: FDA-Public Use
  Company Number: 2004-08-0617

PATIENT
  Sex: Female

DRUGS (1)
  1. DIPROPHOS (BETAMETHASONE SODIUM PHOSPHATE/DIPROPIONATE INJECTABLE SUSP [Suspect]
     Indication: ARTHROPATHY
     Dates: start: 20040801

REACTIONS (2)
  - ANAPHYLACTIC SHOCK [None]
  - LOSS OF CONSCIOUSNESS [None]
